FAERS Safety Report 4543745-5 (Version None)
Quarter: 2005Q1

REPORT INFORMATION
  Report Type: 
  Country: None (occurrence: None)
  Receive Date: 20050103
  Receipt Date: 20040929
  Transmission Date: 20050727
  Serious: Yes (Hospitalization, Other)
  Sender: FDA-Public Use
  Company Number: GB-ABBOTT-04P-167-0275258-00

PATIENT
  Age: 30 Year
  Sex: Male

DRUGS (12)
  1. EPILIM TABLETS [Suspect]
     Indication: DRUG USE FOR UNKNOWN INDICATION
  2. EPILIM TABLETS [Suspect]
  3. EPILIM TABLETS [Suspect]
  4. RISPERIDONE [Interacting]
     Indication: DRUG USE FOR UNKNOWN INDICATION
  5. RISPERIDONE [Interacting]
  6. LEVETIRACETAM [Concomitant]
     Indication: DRUG USE FOR UNKNOWN INDICATION
  7. CITALOPRAM [Concomitant]
     Indication: DRUG USE FOR UNKNOWN INDICATION
     Dates: start: 20040101
  8. PROCYCLIDINE HYDROCHLORIDE 2MG TAB [Concomitant]
     Indication: DRUG USE FOR UNKNOWN INDICATION
     Dates: start: 20040101
  9. TEMAZEPAM [Concomitant]
     Indication: DRUG USE FOR UNKNOWN INDICATION
     Dates: start: 20040101
  10. DIPIXOL [Concomitant]
     Indication: PSYCHOTIC DISORDER
     Route: 030
  11. DIPIXOL [Concomitant]
     Route: 030
  12. OLANZAPINE [Concomitant]
     Indication: PSYCHOTIC DISORDER

REACTIONS (5)
  - CONFUSIONAL STATE [None]
  - DRUG INTERACTION [None]
  - DRUG LEVEL INCREASED [None]
  - HYPONATRAEMIA [None]
  - PANCYTOPENIA [None]
